FAERS Safety Report 6598385 (Version 3)
Quarter: 2015Q4

REPORT INFORMATION
  Report Type: Spontaneous
  Country: AU (occurrence: AU)
  Receive Date: 20080328
  Receipt Date: 20151015
  Transmission Date: 20160305
  Serious: Yes (Hospitalization)
  Sender: FDA-Public Use
  Company Number: AU-PFIZER INC-2008025823

PATIENT
  Sex: Male

DRUGS (4)
  1. CHAMPIX [Suspect]
     Active Substance: VARENICLINE TARTRATE
     Indication: SMOKING CESSATION THERAPY
     Dosage: 0.5 MG, UNK
     Route: 048
  2. TEMAZE [Concomitant]
     Active Substance: TEMAZEPAM
     Dosage: UNK
  3. CHAMPIX [Suspect]
     Active Substance: VARENICLINE TARTRATE
     Dosage: 1 MG, UNK
     Route: 048
  4. METHADONE [Concomitant]
     Active Substance: METHADONE HYDROCHLORIDE
     Dosage: 120 MG, UNK
     Route: 048

REACTIONS (6)
  - Muscle spasms [Recovered/Resolved]
  - Malaise [Recovered/Resolved]
  - Disorientation [Unknown]
  - Myopia [Recovered/Resolved]
  - Dissociation [Recovered/Resolved]
  - Feeling abnormal [Unknown]
